FAERS Safety Report 10751464 (Version 1)
Quarter: 2015Q1

REPORT INFORMATION
  Report Type: Spontaneous
  Country: NZ (occurrence: None)
  Receive Date: 20150129
  Receipt Date: 20150129
  Transmission Date: 20150721
  Serious: Yes (Death, Hospitalization)
  Sender: FDA-Public Use
  Company Number: None

PATIENT
  Age: 8 Year
  Sex: Male
  Weight: 34.4 kg

DRUGS (4)
  1. DEXAMETHASONE. [Suspect]
     Active Substance: DEXAMETHASONE
     Dates: end: 20141107
  2. METHOTREXATE [Suspect]
     Active Substance: METHOTREXATE
     Dates: end: 20141110
  3. VINCRISTINE SULFATE. [Suspect]
     Active Substance: VINCRISTINE SULFATE
     Dates: end: 20141103
  4. MERCAPTOPURINE. [Suspect]
     Active Substance: MERCAPTOPURINE
     Dates: end: 20141111

REACTIONS (11)
  - Tricuspid valve incompetence [None]
  - Malaise [None]
  - Pneumocystis jirovecii infection [None]
  - Metabolic acidosis [None]
  - Endocarditis [None]
  - Hypotension [None]
  - Multi-organ failure [None]
  - Candiduria [None]
  - Asthenia [None]
  - Bone marrow failure [None]
  - Deep vein thrombosis [None]

NARRATIVE: CASE EVENT DATE: 20141111
